FAERS Safety Report 14602222 (Version 1)
Quarter: 2018Q1

REPORT INFORMATION
  Report Type: Spontaneous
  Country: FR (occurrence: FR)
  Receive Date: 20180306
  Receipt Date: 20180306
  Transmission Date: 20180509
  Serious: Yes (Other)
  Sender: FDA-Public Use
  Company Number: FR-MERCK KGAA-2043019

PATIENT
  Age: 35 Year
  Sex: Female
  Weight: 92 kg

DRUGS (1)
  1. NOVOTHYROX [Suspect]
     Active Substance: LEVOTHYROXINE SODIUM
     Indication: HYPOTHYROIDISM
     Route: 048
     Dates: start: 2017, end: 20180111

REACTIONS (9)
  - Dermatitis acneiform [Unknown]
  - Discomfort [Unknown]
  - Urticaria [Unknown]
  - Depression [Unknown]
  - Staphylococcal infection [Unknown]
  - Fatigue [Unknown]
  - Blood thyroid stimulating hormone [Unknown]
  - Candida infection [Unknown]
  - Headache [Unknown]

NARRATIVE: CASE EVENT DATE: 2017
